FAERS Safety Report 17214283 (Version 1)
Quarter: 2020Q1

REPORT INFORMATION
  Report Type: Spontaneous
  Country: AU (occurrence: AU)
  Receive Date: 20191228
  Receipt Date: 20191228
  Transmission Date: 20200409
  Serious: Yes (Other)
  Sender: FDA-Public Use
  Company Number: None

PATIENT
  Age: 49 Year
  Sex: Female
  Weight: 66.5 kg

DRUGS (5)
  1. SERTRALINE [Concomitant]
     Active Substance: SERTRALINE HYDROCHLORIDE
  2. SODIUM VALPROATE 200 + 500MG [Concomitant]
  3. VITAMIN D [Concomitant]
     Active Substance: VITAMIN D NOS
  4. ROACCUTANE [Suspect]
     Active Substance: ISOTRETINOIN
  5. BREXIPRAZOLE 3 MG [Concomitant]

REACTIONS (4)
  - Schizophrenia [None]
  - Depression [None]
  - Suicide attempt [None]
  - Fear [None]
